FAERS Safety Report 9356202 (Version 1)
Quarter: 2013Q2

REPORT INFORMATION
  Report Type: Spontaneous
  Country: JP (occurrence: JP)
  Receive Date: 20130619
  Receipt Date: 20130619
  Transmission Date: 20140414
  Serious: Yes (Hospitalization)
  Sender: FDA-Public Use
  Company Number: JP-GLAXOSMITHKLINE-B0894933A

PATIENT
  Age: 9 Year
  Sex: Male

DRUGS (3)
  1. RELENZA [Suspect]
     Indication: INFLUENZA
     Dosage: 2IUAX TWICE PER DAY
     Route: 055
     Dates: start: 20130228, end: 20130228
  2. NIPOLAZIN [Concomitant]
     Dosage: .28G TWICE PER DAY
     Route: 048
     Dates: start: 20130228
  3. MUCODYNE [Concomitant]
     Dosage: .84G TWICE PER DAY
     Route: 048
     Dates: start: 20130228

REACTIONS (3)
  - Loss of consciousness [Recovered/Resolved]
  - Convulsion [Recovered/Resolved]
  - Febrile convulsion [Recovered/Resolved]
